FAERS Safety Report 23952609 (Version 2)
Quarter: 2024Q2

REPORT INFORMATION
  Report Type: Report from Study
  Country: GR (occurrence: GR)
  Receive Date: 20240607
  Receipt Date: 20240618
  Transmission Date: 20240716
  Serious: Yes (Other)
  Sender: FDA-Public Use
  Company Number: GR-ROCHE-3567594

PATIENT
  Age: 91 Year
  Sex: Female
  Weight: 67 kg

DRUGS (3)
  1. IRINOTECAN HYDROCHLORIDE [Suspect]
     Active Substance: IRINOTECAN HYDROCHLORIDE
     Indication: Neoplasm malignant
     Dosage: EVERY 2 WEEKS, ON 14MAR2024, SHE RECEIVED MOST RECENT DOSE OF IRINOTECAN
     Route: 042
     Dates: start: 20240115, end: 20240426
  2. FLUOROURACIL [Suspect]
     Active Substance: FLUOROURACIL
     Indication: Neoplasm malignant
     Dosage: EVERY 2 WEEKS, ON 14MAR2024, SHE RECEIVED MOST RECENT DOSE OF FLUROURACIL
     Route: 042
     Dates: start: 20230606, end: 20240426
  3. BEVACIZUMAB [Suspect]
     Active Substance: BEVACIZUMAB
     Indication: Neoplasm malignant
     Dosage: EVERY 2 WEEKS, ON 14MAR2024, SHE RECEIVED MOST RECENT DOSE OF BEVACIZUMAB
     Route: 042
     Dates: start: 20221019, end: 20240426

REACTIONS (1)
  - Pulmonary embolism [Not Recovered/Not Resolved]

NARRATIVE: CASE EVENT DATE: 20240401
